FAERS Safety Report 17610730 (Version 1)
Quarter: 2020Q2

REPORT INFORMATION
  Report Type: Spontaneous
  Country: US (occurrence: US)
  Receive Date: 20200401
  Receipt Date: 20200401
  Transmission Date: 20200713
  Serious: Yes (Hospitalization)
  Sender: FDA-Public Use
  Company Number: US-ALVOGEN-2020-ALVOGEN-107966

PATIENT
  Age: 60 Year
  Sex: Female

DRUGS (1)
  1. GRALISE [Suspect]
     Active Substance: GABAPENTIN
     Indication: PRODUCT USED FOR UNKNOWN INDICATION
     Dosage: TAKE 3 TABLETS BY MOUTH WITH FOOD, ONCE DAILY
     Route: 048

REACTIONS (2)
  - Spinal operation [Unknown]
  - Back disorder [Recovered/Resolved]
